FAERS Safety Report 17956535 (Version 1)
Quarter: 2020Q2

REPORT INFORMATION
  Report Type: Spontaneous
  Country: US (occurrence: US)
  Receive Date: 20200627
  Receipt Date: 20200627
  Transmission Date: 20200714
  Serious: Yes (Other)
  Sender: FDA-Public Use
  Company Number: None

PATIENT
  Age: 40 Year
  Sex: Female
  Weight: 76.5 kg

DRUGS (3)
  1. BIRTH CONTROL [Concomitant]
     Active Substance: UNSPECIFIED INGREDIENT
  2. AIMOVIG [Suspect]
     Active Substance: ERENUMAB-AOOE
     Indication: MIGRAINE
     Dosage: ?          QUANTITY:1 INJECTION(S);OTHER FREQUENCY:EVERY 3 MONTHS;?
     Route: 058
     Dates: start: 20190614, end: 20191114
  3. AIMOVIG [Suspect]
     Active Substance: ERENUMAB-AOOE
     Indication: OCCIPITAL NEURALGIA
     Dosage: ?          QUANTITY:1 INJECTION(S);OTHER FREQUENCY:EVERY 3 MONTHS;?
     Route: 058
     Dates: start: 20190614, end: 20191114

REACTIONS (2)
  - Alopecia [None]
  - Arthralgia [None]

NARRATIVE: CASE EVENT DATE: 20191201
